FAERS Safety Report 4538177-X (Version None)
Quarter: 2004Q4

REPORT INFORMATION
  Report Type: 
  Country: None (occurrence: None)
  Receive Date: 20041227
  Receipt Date: 20041215
  Transmission Date: 20050328
  Serious: Yes (Hospitalization, Other)
  Sender: FDA-Public Use
  Company Number: JP-BRISTOL-MYERS SQUIBB COMPANY-12803953

PATIENT
  Age: 7 Decade
  Sex: Male

DRUGS (5)
  1. EFAVIRENZ CAPS [Suspect]
     Indication: HIV INFECTION
     Route: 048
  2. STAVUDINE [Suspect]
     Dates: start: 19990101
  3. DIDANOSINE [Suspect]
     Dates: start: 19990101
  4. EPIVIR [Concomitant]
  5. ZIAGEN [Concomitant]

REACTIONS (2)
  - DIABETES MELLITUS [None]
  - WEIGHT DECREASED [None]
